FAERS Safety Report 6677311-2 (Version None)
Quarter: 2010Q2

REPORT INFORMATION
  Report Type: 
  Country: None (occurrence: None)
  Receive Date: 20100412
  Receipt Date: 20100331
  Transmission Date: 20101027
  Serious: Yes (Other)
  Sender: FDA-Public Use
  Company Number: GB-WATSON-2010-03438

PATIENT

DRUGS (9)
  1. CITALOPRAM HYDROBROMIDE [Suspect]
     Indication: DEPRESSION
     Dosage: 20 MG, UNK
     Route: 048
     Dates: end: 20100212
  2. CLOZARIL [Suspect]
     Indication: SCHIZOPHRENIA
     Dosage: 400 MG, DAILY
     Dates: start: 20091023
  3. CLOZARIL [Suspect]
     Dosage: 500 MG, DAILY
  4. ASPIRIN [Concomitant]
     Indication: DRUG USE FOR UNKNOWN INDICATION
     Dosage: UNK
     Route: 048
  5. GLICLAZIDE [Concomitant]
     Indication: DIABETES MELLITUS
     Dosage: 160 MG, UNK
     Route: 048
  6. IRON [Concomitant]
     Indication: FOLATE DEFICIENCY
     Dosage: 325 MG, UNK
     Route: 048
  7. METFORMIN HCL [Concomitant]
     Indication: DIABETES MELLITUS
     Dosage: 2 G, UNK
     Route: 048
  8. OMEPRAZOLE [Concomitant]
     Indication: DYSPEPSIA
     Dosage: 20 MG, UNK
     Route: 048
  9. PROPRANOLOL [Concomitant]
     Indication: ANXIETY
     Dosage: 40 MG, UNK
     Route: 048

REACTIONS (4)
  - ANTIPSYCHOTIC DRUG LEVEL INCREASED [None]
  - BLOOD ALKALINE PHOSPHATASE INCREASED [None]
  - BLOOD SODIUM DECREASED [None]
  - PNEUMONIA [None]
